FAERS Safety Report 19459946 (Version 2)
Quarter: 2021Q2

REPORT INFORMATION
  Report Type: Spontaneous
  Country: JP (occurrence: JP)
  Receive Date: 20210625
  Receipt Date: 20210629
  Transmission Date: 20210717
  Serious: Yes (Hospitalization, Other)
  Sender: FDA-Public Use
  Company Number: JP-009507513-2106JPN004288

PATIENT
  Age: 57 Year
  Sex: Male

DRUGS (3)
  1. CARBOPLATIN. [Concomitant]
     Active Substance: CARBOPLATIN
     Indication: LUNG CANCER METASTATIC
     Dosage: UNK, EVERY 4 WEEKS
     Dates: start: 20200703
  2. PEMBROLIZUMAB. [Suspect]
     Active Substance: PEMBROLIZUMAB
     Indication: LUNG CANCER METASTATIC
     Dosage: UNK, EVERY 4 WEEKS
     Dates: start: 20200703
  3. PACLITAXEL ALBUMIN [Concomitant]
     Active Substance: PACLITAXEL
     Indication: LUNG CANCER METASTATIC
     Dosage: UNK, EVERY 4 WEEKS
     Dates: start: 20200703

REACTIONS (2)
  - Cholangitis sclerosing [Unknown]
  - Autoimmune pancreatitis [Unknown]

NARRATIVE: CASE EVENT DATE: 202008
